FAERS Safety Report 20532112 (Version 1)
Quarter: 2022Q1

REPORT INFORMATION
  Report Type: Spontaneous
  Country: US (occurrence: None)
  Receive Date: 20220228
  Receipt Date: 20220228
  Transmission Date: 20220423
  Serious: No
  Sender: FDA-Public Use
  Company Number: None

PATIENT
  Age: 79 Year
  Sex: Female
  Weight: 96.75 kg

DRUGS (1)
  1. RITUXAN [Suspect]
     Active Substance: RITUXIMAB
     Indication: Rheumatoid arthritis
     Route: 042
     Dates: start: 20210527, end: 20210527

REACTIONS (6)
  - Nausea [None]
  - Nervousness [None]
  - Chest pain [None]
  - Infusion related reaction [None]
  - Mobility decreased [None]
  - Hemiplegia [None]

NARRATIVE: CASE EVENT DATE: 20210527
